FAERS Safety Report 8345370-7 (Version None)
Quarter: 2012Q2

REPORT INFORMATION
  Report Type: 
  Country: None (occurrence: None)
  Receive Date: 20120508
  Receipt Date: 20120502
  Transmission Date: 20120825
  Serious: Yes (Hospitalization)
  Sender: FDA-Public Use
  Company Number: BR-ABBOTT-12P-020-0932086-00

PATIENT
  Sex: Male
  Weight: 72 kg

DRUGS (5)
  1. ATENOLOL [Concomitant]
     Indication: BLOOD PRESSURE
     Dosage: IN THE AFTERNOON
     Route: 048
  2. MINILAX [Concomitant]
     Indication: DIVERTICULITIS
     Dosage: 1 PACK DAILY IN THE MORNING
  3. HUMIRA [Suspect]
     Indication: ANKYLOSING SPONDYLITIS
     Route: 058
     Dates: start: 20090901, end: 20120101
  4. PRELONE [Concomitant]
     Indication: TENDON DISORDER
     Dosage: 1 TB IN THE MORNING AND 0.5 TB AT NIGHT
  5. BENICAR [Concomitant]
     Indication: BLOOD PRESSURE
     Dosage: IN THE MORNING
     Route: 048

REACTIONS (3)
  - UNEVALUABLE EVENT [None]
  - HAEMORRHOIDS [None]
  - BONE PAIN [None]
